FAERS Safety Report 5787220-9 (Version None)
Quarter: 2008Q2

REPORT INFORMATION
  Report Type: 
  Country: None (occurrence: None)
  Receive Date: 20080623
  Receipt Date: 20080623
  Transmission Date: 20081010
  Serious: No
  Sender: FDA-Public Use
  Company Number: None

PATIENT
  Sex: Male
  Weight: 90.7194 kg

DRUGS (1)
  1. GEMFIBROZIL [Suspect]
     Indication: BLOOD TRIGLYCERIDES
     Dosage: ONE TAB TWICE A DAY PO
     Route: 048
     Dates: start: 20080311, end: 20080409

REACTIONS (3)
  - ANXIETY [None]
  - HYPOAESTHESIA [None]
  - PARAESTHESIA [None]
